FAERS Safety Report 14576067 (Version 1)
Quarter: 2018Q1

REPORT INFORMATION
  Report Type: Report from Study
  Country: US (occurrence: US)
  Receive Date: 20180227
  Receipt Date: 20180227
  Transmission Date: 20180509
  Serious: Yes (Hospitalization, Other)
  Sender: FDA-Public Use
  Company Number: US-009507513-1801USA013338

PATIENT
  Sex: Male
  Weight: 57.14 kg

DRUGS (1)
  1. KEYTRUDA [Suspect]
     Active Substance: PEMBROLIZUMAB
     Dosage: 100 MG, QM
     Route: 042
     Dates: end: 20171115

REACTIONS (10)
  - Drug dose omission [Unknown]
  - Fall [Unknown]
  - Metastases to bone [Unknown]
  - Product use issue [Unknown]
  - Rib fracture [Unknown]
  - Metastases to central nervous system [Unknown]
  - Diarrhoea [Recovered/Resolved]
  - Asthenia [Recovering/Resolving]
  - Lung adenocarcinoma stage IV [Unknown]
  - Nausea [Recovered/Resolved]

NARRATIVE: CASE EVENT DATE: 2017
